FAERS Safety Report 10636285 (Version 2)
Quarter: 2014Q4

REPORT INFORMATION
  Report Type: Spontaneous
  Country: US (occurrence: US)
  Receive Date: 20141206
  Receipt Date: 20141223
  Transmission Date: 20150529
  Serious: Yes (Hospitalization, Other)
  Sender: FDA-Public Use
  Company Number: US-AUROBINDO-AUR-APL-2014-12798

PATIENT
  Age: 6 Month
  Sex: Male

DRUGS (3)
  1. CEPHALEXIN. [Suspect]
     Active Substance: CEPHALEXIN
     Indication: INFANTILE HAEMANGIOMA
     Dosage: UNK
     Route: 065
  2. CEPHALEXIN. [Suspect]
     Active Substance: CEPHALEXIN
     Indication: ULCER
  3. CEPHALEXIN. [Suspect]
     Active Substance: CEPHALEXIN
     Indication: SUPERINFECTION

REACTIONS (1)
  - Drug ineffective [Unknown]
